FAERS Safety Report 9861953 (Version 3)
Quarter: 2017Q1

REPORT INFORMATION
  Report Type: Report from Study
  Country: US (occurrence: US)
  Receive Date: 20140203
  Receipt Date: 20170206
  Transmission Date: 20170429
  Serious: Yes (Death, Other)
  Sender: FDA-Public Use
  Company Number: US-ROCHE-1338912

PATIENT

DRUGS (8)
  1. BEVACIZUMAB [Suspect]
     Active Substance: BEVACIZUMAB
     Indication: COLORECTAL CANCER METASTATIC
     Route: 065
  2. CONATUMUMAB [Suspect]
     Active Substance: CONATUMUMAB
     Route: 042
  3. CONATUMUMAB [Suspect]
     Active Substance: CONATUMUMAB
     Route: 042
  4. 5-FU [Suspect]
     Active Substance: FLUOROURACIL
     Route: 042
  5. CONATUMUMAB [Suspect]
     Active Substance: CONATUMUMAB
     Indication: COLORECTAL CANCER METASTATIC
     Route: 042
  6. LEUCOVORIN. [Suspect]
     Active Substance: LEUCOVORIN
     Indication: COLORECTAL CANCER METASTATIC
     Route: 065
  7. OXALIPLATIN. [Suspect]
     Active Substance: OXALIPLATIN
     Indication: COLORECTAL CANCER METASTATIC
     Route: 065
  8. 5-FU [Suspect]
     Active Substance: FLUOROURACIL
     Indication: COLORECTAL CANCER METASTATIC
     Dosage: BOLUS
     Route: 042

REACTIONS (15)
  - Respiratory failure [Fatal]
  - Palmar-plantar erythrodysaesthesia syndrome [Unknown]
  - Abdominal pain [Unknown]
  - Cerebral haemorrhage [Fatal]
  - Neuropathy peripheral [Unknown]
  - Pneumonia [Fatal]
  - Febrile neutropenia [Unknown]
  - Deep vein thrombosis [Unknown]
  - Hypokalaemia [Unknown]
  - Diarrhoea [Unknown]
  - Neutropenia [Unknown]
  - Decreased appetite [Unknown]
  - Fatigue [Unknown]
  - Neoplasm malignant [Fatal]
  - Pulmonary embolism [Unknown]
